FAERS Safety Report 4898712-9 (Version None)
Quarter: 2006Q1

REPORT INFORMATION
  Report Type: 
  Country: None (occurrence: None)
  Receive Date: 20060127
  Receipt Date: 20060116
  Transmission Date: 20060701
  Serious: Yes (Hospitalization, Other)
  Sender: FDA-Public Use
  Company Number: 2006009227

PATIENT
  Sex: Female
  Weight: 85.2762 kg

DRUGS (2)
  1. XANAX [Suspect]
     Indication: ANXIETY
     Dosage: 3 MG (1 MG, 3 IN 1 D),
     Dates: start: 19850101, end: 20060101
  2. XANAX [Suspect]
     Indication: ANXIETY
     Dosage: 3 MG (1 MG, 3 IN 1 D),
     Dates: start: 20060109, end: 20060111

REACTIONS (11)
  - ARTHROPATHY [None]
  - ATRIOVENTRICULAR BLOCK [None]
  - BLOOD CHOLESTEROL INCREASED [None]
  - DEPRESSION [None]
  - HEADACHE [None]
  - HEART RATE INCREASED [None]
  - HYPERTENSION [None]
  - NAUSEA [None]
  - RETCHING [None]
  - SALIVA ALTERED [None]
  - VENTRICULAR EXTRASYSTOLES [None]
